FAERS Safety Report 5928781-6 (Version None)
Quarter: 2008Q4

REPORT INFORMATION
  Report Type: 
  Country: None (occurrence: None)
  Receive Date: 20081021
  Receipt Date: 20081006
  Transmission Date: 20090506
  Serious: Yes (Death, Hospitalization)
  Sender: FDA-Public Use
  Company Number: B0541983A

PATIENT
  Age: 31 Year
  Sex: Male

DRUGS (6)
  1. TOPOTECAN HYDROCHLORIDE (FORMULATION UNKNOWN) (GENERIC) (TOPOTECAN) [Suspect]
     Indication: BURKITT'S LYMPHOMA
     Dosage: 1 MG/M2, PER DAY, INTRAVENOUS
     Route: 042
  2. VINORELBINE TARTRATE [Suspect]
     Indication: BURKITT'S LYMPHOMA
     Dosage: 20 MG/M2, INTRAVENOUS
     Route: 042
  3. GEMCITABINE HCL [Suspect]
     Indication: BURKITT'S LYMPHOMA
     Dosage: 3600 MG/M2, 6H
  4. THIOTEPA [Suspect]
     Indication: BURKITT'S LYMPHOMA
     Dosage: 15 MG/M2, 4HR,
  5. DEXAMETHASONE [Concomitant]
  6. GRANULOCYTE COL. STIM. FACT [Concomitant]

REACTIONS (4)
  - BONE MARROW FAILURE [None]
  - PATHOGEN RESISTANCE [None]
  - PNEUMONIA BACTERIAL [None]
  - STENOTROPHOMONAS INFECTION [None]
